FAERS Safety Report 6619361-8 (Version None)
Quarter: 2010Q1

REPORT INFORMATION
  Report Type: 
  Country: None (occurrence: None)
  Receive Date: 20100303
  Receipt Date: 20100215
  Transmission Date: 20100710
  Serious: Yes (Hospitalization)
  Sender: FDA-Public Use
  Company Number: AUR-APL-2010-00398

PATIENT
  Age: 63 Year
  Sex: Female
  Weight: 86 kg

DRUGS (9)
  1. BISOPROLOL [Suspect]
     Indication: HYPERTENSION
     Dosage: 2.5MG, ORAL
     Route: 048
     Dates: start: 19950101
  2. LISINOPRIL [Suspect]
     Indication: HYPERTENSION
     Dosage: 20MG, ORAL
     Route: 048
     Dates: start: 20010101
  3. SIMVASTATIN [Suspect]
     Indication: HYPERLIPIDAEMIA
     Dosage: 10MG - ORAL
     Route: 048
  4. VALPROIC ACID [Suspect]
     Indication: BIPOLAR DISORDER
     Dosage: 500MG - DAILY - ORAL
     Route: 048
     Dates: start: 20090820
  5. PRESOMEN  (ESTROGENS CONJ.) [Suspect]
     Indication: HORMONE REPLACEMENT THERAPY
     Dosage: 0.3MG - ORAL
     Route: 048
     Dates: start: 20040101, end: 20080911
  6. AMITRIPTYLINE HCL [Suspect]
     Indication: DEPRESSION
     Dosage: 100MG - ORAL
     Route: 048
     Dates: start: 20040101, end: 20090819
  7. HERZ ASS-RATIOPHARM (ACETYLSALICYLIC ACID) [Suspect]
     Indication: CORONARY ARTERY DISEASE
     Dosage: 100MG - ORAL
     Route: 048
     Dates: start: 20010101
  8. BECLOMETHASONE DIPROPIONATE [Concomitant]
  9. INFLUSPLIT SSW (INFLUENZA VIRUS) [Concomitant]

REACTIONS (3)
  - HEPATITIS VIRAL [None]
  - HEPATOTOXICITY [None]
  - PAIN [None]
